FAERS Safety Report 7418034-1 (Version None)
Quarter: 2011Q2

REPORT INFORMATION
  Report Type: 
  Country: None (occurrence: None)
  Receive Date: 20110415
  Receipt Date: 20110406
  Transmission Date: 20111010
  Serious: Yes (Life-Threatening, Hospitalization, Disabling)
  Sender: FDA-Public Use
  Company Number: GB-ROCHE-769992

PATIENT
  Age: 62 Year
  Sex: Female

DRUGS (5)
  1. OMEPRAZOLE [Concomitant]
     Route: 048
  2. ACTEMRA [Suspect]
     Indication: RHEUMATOID ARTHRITIS
     Dosage: DRUG WITHDRAWN.
     Route: 042
     Dates: start: 20101125, end: 20110203
  3. AMLODIPINE [Concomitant]
     Route: 048
  4. NAPROXEN [Concomitant]
     Route: 048
  5. LISINOPRIL [Concomitant]
     Route: 048

REACTIONS (1)
  - PANCREATITIS NECROTISING [None]
